FAERS Safety Report 4360557-6 (Version None)
Quarter: 2004Q2

REPORT INFORMATION
  Report Type: 
  Country: None (occurrence: None)
  Receive Date: 20040519
  Receipt Date: 20040421
  Transmission Date: 20050107
  Serious: Yes (Other)
  Sender: FDA-Public Use
  Company Number: JP-ROCHE-365094

PATIENT
  Age: 77 Year
  Sex: Female
  Weight: 62 kg

DRUGS (2)
  1. CAPECITABINE [Suspect]
     Indication: BREAST CANCER
     Dosage: 3 WEEKS ADMINISTRATION AND 1 WEEK REST.
     Route: 048
     Dates: start: 20030926
  2. PAMIDRONATE DISODIUM [Concomitant]
     Indication: BREAST CANCER
     Route: 041
     Dates: start: 20030919

REACTIONS (2)
  - CONTUSION [None]
  - PULMONARY EMBOLISM [None]
